FAERS Safety Report 5586872-6 (Version None)
Quarter: 2008Q1

REPORT INFORMATION
  Report Type: 
  Country: None (occurrence: None)
  Receive Date: 20080108
  Receipt Date: 20080108
  Transmission Date: 20080703
  Serious: Yes (Other)
  Sender: FDA-Public Use
  Company Number: None

PATIENT
  Sex: Female
  Weight: 88.4514 kg

DRUGS (1)
  1. ORAJEL ADVANCED TOOTH DESENTIZER [Suspect]
     Indication: SENSITIVITY OF TEETH
     Dosage: APPLY TOPICALY   1 EVERY 28 DAYS
     Route: 061

REACTIONS (4)
  - LIP SWELLING [None]
  - ORAL HERPES [None]
  - SWOLLEN TONGUE [None]
  - TONGUE ULCERATION [None]
